FAERS Safety Report 13540548 (Version 7)
Quarter: 2017Q3

REPORT INFORMATION
  Report Type: Report from Study
  Country: UG (occurrence: UG)
  Receive Date: 20170512
  Receipt Date: 20170720
  Transmission Date: 20171127
  Serious: Yes (Death, Life-Threatening, Hospitalization, Disabling)
  Sender: FDA-Public Use
  Company Number: UG-CIPLA LTD.-2017UG08653

PATIENT

DRUGS (9)
  1. LIPOSOMAL AMPHOTERICIN B [Suspect]
     Active Substance: AMPHOTERICIN B
     Indication: MENINGITIS CRYPTOCOCCAL
     Dosage: 6 MG/KG, QD
     Route: 042
     Dates: start: 20170505, end: 20170509
  2. DICLOFENAC [Concomitant]
     Active Substance: DICLOFENAC
     Indication: PYREXIA
  3. PHENYTOIN. [Concomitant]
     Active Substance: PHENYTOIN
     Indication: GENERALISED TONIC-CLONIC SEIZURE
     Dosage: 200 MG, TID
     Route: 065
     Dates: start: 20170509
  4. PHENYTOIN. [Concomitant]
     Active Substance: PHENYTOIN
     Dosage: 500 MG, BID
     Route: 042
     Dates: start: 20170509
  5. COTRIMOXAZOLE [Concomitant]
     Active Substance: SULFAMETHOXAZOLE\TRIMETHOPRIM
     Indication: PROPHYLAXIS AGAINST HIV INFECTION
     Dosage: 960 MG, QD
     Route: 048
     Dates: start: 20170502, end: 20170512
  6. DICLOFENAC [Concomitant]
     Active Substance: DICLOFENAC
     Indication: HEADACHE
     Dosage: 50 MG, TID
     Route: 048
     Dates: start: 20170502, end: 20170512
  7. DICLOFENAC [Concomitant]
     Active Substance: DICLOFENAC
     Indication: ABDOMINAL PAIN
  8. PHENYTOIN. [Concomitant]
     Active Substance: PHENYTOIN
     Dosage: 500 MG, BID
     Route: 030
     Dates: start: 20170509
  9. DIAZEPAM. [Concomitant]
     Active Substance: DIAZEPAM
     Indication: GENERALISED TONIC-CLONIC SEIZURE
     Dosage: 10 MG, STAT
     Route: 042
     Dates: start: 20170509, end: 20170509

REACTIONS (6)
  - Generalised tonic-clonic seizure [Fatal]
  - Hypotension [Recovered/Resolved]
  - Brain stem syndrome [Fatal]
  - Intracranial pressure increased [Fatal]
  - Abdominal discomfort [Unknown]
  - Brain oedema [Fatal]

NARRATIVE: CASE EVENT DATE: 20170505
